FAERS Safety Report 20745309 (Version 2)
Quarter: 2022Q2

REPORT INFORMATION
  Report Type: Spontaneous
  Country: US (occurrence: US)
  Receive Date: 20220425
  Receipt Date: 20220520
  Transmission Date: 20220721
  Serious: No
  Sender: FDA-Public Use
  Company Number: US-PFIZER INC-202101352494

PATIENT
  Age: 57 Year
  Sex: Female

DRUGS (1)
  1. XELJANZ XR [Suspect]
     Active Substance: TOFACITINIB CITRATE
     Indication: Rheumatoid arthritis
     Dosage: 11 MG, DAILY
     Route: 048
     Dates: start: 2016

REACTIONS (7)
  - Product dose omission issue [Unknown]
  - Illness [Unknown]
  - Memory impairment [Unknown]
  - Pharyngitis [Unknown]
  - Pain [Recovering/Resolving]
  - Depressed mood [Unknown]
  - Discouragement [Unknown]
